FAERS Safety Report 9478139 (Version 2)
Quarter: 2013Q3

REPORT INFORMATION
  Report Type: Spontaneous
  Country: US (occurrence: None)
  Receive Date: 20130813
  Receipt Date: 20130823
  Transmission Date: 20140515
  Serious: Yes (Other)
  Sender: FDA-Public Use
  Company Number: 2013PROUSA03051

PATIENT
  Age: 73 Year
  Sex: Male
  Weight: 82.5 kg

DRUGS (1)
  1. PROVENGE [Suspect]
     Indication: PROSTATE CANCER METASTATIC
     Dosage: 250ML SINGLE, INTRAVENOUS
     Route: 042
     Dates: start: 20130715, end: 20130715

REACTIONS (3)
  - Blood pressure decreased [None]
  - Pain in extremity [None]
  - Hypotension [None]
